FAERS Safety Report 8066519-X (Version None)
Quarter: 2012Q1

REPORT INFORMATION
  Report Type: 
  Country: None (occurrence: None)
  Receive Date: 20120124
  Receipt Date: 20120113
  Transmission Date: 20120608
  Serious: Yes (Hospitalization)
  Sender: FDA-Public Use
  Company Number: PHHY2011AU107881

PATIENT
  Sex: Male

DRUGS (2)
  1. CLOZARIL [Suspect]
     Dosage: 400 MG,
     Route: 048
     Dates: start: 20110622, end: 20111204
  2. CLOZARIL [Suspect]
     Dosage: 400 MG
     Dates: start: 20111206

REACTIONS (5)
  - SOMNOLENCE [None]
  - WHITE BLOOD CELL COUNT INCREASED [None]
  - SEDATION [None]
  - NEUTROPHIL COUNT INCREASED [None]
  - ALTERED STATE OF CONSCIOUSNESS [None]
